FAERS Safety Report 8917341 (Version 1)
Quarter: 2012Q4

REPORT INFORMATION
  Report Type: 
  Country: FR (occurrence: FR)
  Receive Date: 20121120
  Receipt Date: 20121120
  Transmission Date: 20130627
  Serious: Yes (Death, Life-Threatening)
  Sender: FDA-Public Use
  Company Number: FR-B.I. PHARMACEUTICALS,INC./RIDGEFIELD-2012-FF-01594FF

PATIENT
  Age: 94 Year
  Sex: Female

DRUGS (5)
  1. PRADAXA [Suspect]
     Indication: ATRIAL FIBRILLATION
     Dosage: 220 mg
     Route: 048
     Dates: start: 20120202, end: 20120830
  2. TARDYFERON [Suspect]
     Indication: ANAEMIA
     Dosage: 1 anz
     Route: 048
     Dates: start: 20120828
  3. DIGOXINE [Suspect]
     Indication: CARDIAC FAILURE
     Dosage: 0.065 mg
     Dates: start: 20120828
  4. FUROSEMIDE [Concomitant]
  5. DIFFU K [Concomitant]

REACTIONS (3)
  - Subcutaneous haematoma [Fatal]
  - Puncture site haemorrhage [Fatal]
  - Hypernatraemia [Fatal]
